FAERS Safety Report 20758350 (Version 1)
Quarter: 2022Q2

REPORT INFORMATION
  Report Type: Spontaneous
  Country: CA (occurrence: CA)
  Receive Date: 20220427
  Receipt Date: 20220427
  Transmission Date: 20220721
  Serious: Yes (Life-Threatening, Hospitalization, Other)
  Sender: FDA-Public Use
  Company Number: CA-NOVARTISPH-NVSC2022CA096918

PATIENT
  Age: 85 Year
  Sex: Male
  Weight: 117 kg

DRUGS (3)
  1. ENTRESTO [Suspect]
     Active Substance: SACUBITRIL\VALSARTAN
     Indication: Product used for unknown indication
     Dosage: UNK
     Route: 065
  2. SEMAGLUTIDE [Suspect]
     Active Substance: SEMAGLUTIDE
     Indication: Obesity
     Dosage: 1 DOSAGE FORM
     Route: 065
     Dates: start: 20201008, end: 20211007
  3. SEMAGLUTIDE [Suspect]
     Active Substance: SEMAGLUTIDE
     Dosage: 1 DOSAGE FORM
     Route: 065
     Dates: start: 20211028, end: 20220217

REACTIONS (3)
  - Acute kidney injury [Recovered/Resolved]
  - Cardiac failure congestive [Unknown]
  - Hypotension [Unknown]

NARRATIVE: CASE EVENT DATE: 20220225
